FAERS Safety Report 7455966-2 (Version None)
Quarter: 2011Q2

REPORT INFORMATION
  Report Type: 
  Country: None (occurrence: None)
  Receive Date: 20110426
  Receipt Date: 20110415
  Transmission Date: 20111010
  Serious: Yes (Other)
  Sender: FDA-Public Use
  Company Number: 201104055

PATIENT
  Age: 58 Year
  Sex: Male

DRUGS (6)
  1. PROZAC [Concomitant]
  2. CYMBALTA [Concomitant]
  3. ATENOLOL [Concomitant]
  4. TESTIM [Suspect]
     Indication: BLOOD TESTOSTERONE DECREASED
     Dosage: 50 MG ; 100 MG; 150 MG ; TRANSDERMAL
     Route: 062
     Dates: start: 20090401
  5. MORPHINE [Concomitant]
  6. FUROSEMIDE [Concomitant]

REACTIONS (5)
  - GYNAECOMASTIA [None]
  - HAIR GROWTH ABNORMAL [None]
  - UNEVALUABLE EVENT [None]
  - GASTRIC BYPASS [None]
  - DRUG ADMINISTERED AT INAPPROPRIATE SITE [None]
